FAERS Safety Report 7959375-9 (Version None)
Quarter: 2011Q4

REPORT INFORMATION
  Report Type: 
  Country: None (occurrence: None)
  Receive Date: 20111206
  Receipt Date: 20111130
  Transmission Date: 20120403
  Serious: Yes (Congenital Anomaly, Other)
  Sender: FDA-Public Use
  Company Number: US-PFIZER INC-2011285523

PATIENT
  Sex: Male
  Weight: 2.9 kg

DRUGS (2)
  1. ZOLOFT [Suspect]
     Indication: ANXIETY
     Dosage: 50 MG, 1X/DAY
     Route: 064
     Dates: start: 20080501
  2. MULTI-VITAMINS [Concomitant]
     Dosage: 1 TAB DAILY
     Route: 048

REACTIONS (6)
  - RIGHT ATRIAL DILATATION [None]
  - BLOOD GLUCOSE DECREASED [None]
  - DILATATION VENTRICULAR [None]
  - MATERNAL EXPOSURE TIMING UNSPECIFIED [None]
  - TRICUSPID VALVE INCOMPETENCE [None]
  - CARDIAC MURMUR [None]
